FAERS Safety Report 22055709 (Version 1)
Quarter: 2023Q1

REPORT INFORMATION
  Report Type: Spontaneous
  Country: US (occurrence: US)
  Receive Date: 20230302
  Receipt Date: 20230302
  Transmission Date: 20230417
  Serious: Yes (Hospitalization)
  Sender: FDA-Public Use
  Company Number: US-KARYOPHARM-2023KPT000845

PATIENT

DRUGS (18)
  1. XPOVIO [Suspect]
     Active Substance: SELINEXOR
     Indication: Plasma cell myeloma
     Dosage: 80 MG, 2X/WEEK
     Route: 048
     Dates: start: 20230216, end: 20230219
  2. TOUJEO [Concomitant]
     Active Substance: INSULIN GLARGINE
  3. AVODART [Concomitant]
     Active Substance: DUTASTERIDE
  4. HYDRALAZINE [Concomitant]
     Active Substance: HYDRALAZINE HYDROCHLORIDE
  5. LINZESS [Concomitant]
     Active Substance: LINACLOTIDE
  6. ATORVASTATIN [Concomitant]
     Active Substance: ATORVASTATIN
  7. LASIX [Concomitant]
     Active Substance: FUROSEMIDE
  8. OXYBUTYNIN [Concomitant]
     Active Substance: OXYBUTYNIN
  9. NEXIUM I.V. [Concomitant]
     Active Substance: ESOMEPRAZOLE SODIUM
  10. FLOMAX [Concomitant]
     Active Substance: TAMSULOSIN HYDROCHLORIDE
  11. GABAPENTIN [Concomitant]
     Active Substance: GABAPENTIN
  12. DEXAMETHASONE [Concomitant]
     Active Substance: DEXAMETHASONE
  13. LIDOCAINE\PRILOCAINE [Concomitant]
     Active Substance: LIDOCAINE\PRILOCAINE
  14. ACYCLOVIR [Concomitant]
     Active Substance: ACYCLOVIR
  15. CARVEDILOL [Concomitant]
     Active Substance: CARVEDILOL
     Dosage: 12.5 MG
  16. HUMALOG JUNIOR KWIKPEN [Concomitant]
     Active Substance: INSULIN LISPRO
  17. LOSARTAN [Concomitant]
     Active Substance: LOSARTAN
  18. DULCOLAX BALANCE [Concomitant]
     Active Substance: POLYETHYLENE GLYCOL 3350
     Dosage: 0.5 MG

REACTIONS (5)
  - Disorientation [Unknown]
  - Hypotension [Unknown]
  - Bradycardia [Unknown]
  - Diarrhoea [Unknown]
  - Dehydration [Unknown]

NARRATIVE: CASE EVENT DATE: 20230219
